FAERS Safety Report 19916130 (Version 1)
Quarter: 2021Q4

REPORT INFORMATION
  Report Type: Spontaneous
  Country: US (occurrence: US)
  Receive Date: 20211004
  Receipt Date: 20211004
  Transmission Date: 20220303
  Serious: No
  Sender: FDA-Public Use
  Company Number: None

PATIENT
  Age: 52 Year
  Sex: Male
  Weight: 154.35 kg

DRUGS (1)
  1. TINACTIN [Suspect]
     Active Substance: TOLNAFTATE
     Indication: Tinea cruris
     Dosage: ?          QUANTITY:3 SPRAY CANS;
     Route: 061
     Dates: start: 20200720, end: 20200721

REACTIONS (2)
  - Application site pain [None]
  - Application site erythema [None]

NARRATIVE: CASE EVENT DATE: 20200720
